FAERS Safety Report 6901864-X (Version None)
Quarter: 2010Q3

REPORT INFORMATION
  Report Type: 
  Country: None (occurrence: None)
  Receive Date: 20100803
  Receipt Date: 20080314
  Transmission Date: 20110219
  Serious: No
  Sender: FDA-Public Use
  Company Number: US-PFIZER INC-2008025130

PATIENT
  Age: 51 Year
  Sex: Female
  Weight: 47.7 kg

DRUGS (6)
  1. LYRICA [Suspect]
     Indication: BACK PAIN
     Route: 048
     Dates: start: 20061001
  2. ESTROGENS SOL/INJ [Concomitant]
  3. AMBIEN [Concomitant]
  4. MOTRIN [Concomitant]
  5. MULTI-VITAMINS [Concomitant]
  6. ZOLOFT [Concomitant]

REACTIONS (11)
  - ANXIETY [None]
  - DISTURBANCE IN ATTENTION [None]
  - DIZZINESS [None]
  - DRUG INEFFECTIVE [None]
  - DRY MOUTH [None]
  - ERYTHEMA [None]
  - FEELING ABNORMAL [None]
  - MYALGIA [None]
  - PALPITATIONS [None]
  - PRURITUS GENERALISED [None]
  - URTICARIA [None]
